FAERS Safety Report 8484677-X (Version None)
Quarter: 2012Q3

REPORT INFORMATION
  Report Type: 
  Country: None (occurrence: None)
  Receive Date: 20120703
  Receipt Date: 20120621
  Transmission Date: 20120928
  Serious: Yes (Other)
  Sender: FDA-Public Use
  Company Number: BR-BRISTOL-MYERS SQUIBB COMPANY-16706590

PATIENT
  Sex: Female

DRUGS (1)
  1. IRBESARTAN [Suspect]

REACTIONS (1)
  - BRONCHIOLITIS [None]
